FAERS Safety Report 13005317 (Version 2)
Quarter: 2016Q4

REPORT INFORMATION
  Report Type: Spontaneous
  Country: DE (occurrence: DE)
  Receive Date: 20161207
  Receipt Date: 20161220
  Transmission Date: 20170207
  Serious: Yes (Other)
  Sender: FDA-Public Use
  Company Number: DE-SUN PHARMACEUTICAL INDUSTRIES LTD-2016RR-128742

PATIENT
  Age: 52 Year

DRUGS (2)
  1. CARBOPLATIN. [Suspect]
     Active Substance: CARBOPLATIN
     Indication: SQUAMOUS CELL CARCINOMA
     Dosage: 16 CYCLES OF A METRONOMIC THERAPY WEEKLY LOW-DOSE / ABSOLUTE DOSE
     Route: 065
     Dates: start: 201508, end: 201512
  2. PACLITAXEL NAB [Suspect]
     Active Substance: PACLITAXEL
     Indication: SQUAMOUS CELL CARCINOMA
     Dosage: 16 CYCLES OF A METRONOMIC THERAPY WEEKLY LOW-DOSE / ABSOLUTE DOSE
     Route: 065
     Dates: start: 201508, end: 201512

REACTIONS (2)
  - Alopecia [Unknown]
  - Disease progression [Unknown]
